FAERS Safety Report 8000533-5 (Version None)
Quarter: 2011Q4

REPORT INFORMATION
  Report Type: 
  Country: None (occurrence: None)
  Receive Date: 20111222
  Receipt Date: 20111220
  Transmission Date: 20120403
  Serious: Yes (Other)
  Sender: FDA-Public Use
  Company Number: US-JNJFOC-20111200492

PATIENT
  Sex: Female
  Weight: 90.72 kg

DRUGS (12)
  1. SIMPONI [Suspect]
     Route: 058
     Dates: start: 20111101
  2. VITAMIN D [Concomitant]
     Indication: MEDICAL DIET
     Route: 048
     Dates: start: 20110501
  3. ZONEGRAN [Concomitant]
     Indication: CONVULSION
     Route: 048
     Dates: start: 20060101
  4. XANAX [Concomitant]
     Indication: PANIC ATTACK
     Dosage: AS NEEDED
     Route: 048
     Dates: start: 20010101
  5. ENALAPRIL MALEATE [Concomitant]
     Indication: HYPERTENSION
     Route: 048
     Dates: start: 20010101
  6. LIPITOR [Concomitant]
     Indication: BLOOD CHOLESTEROL INCREASED
     Route: 048
     Dates: start: 20070101
  7. SIMPONI [Suspect]
     Indication: PRODUCT USED FOR UNKNOWN INDICATION
     Route: 058
     Dates: start: 20110701, end: 20110801
  8. TIZANIDINE HCL [Concomitant]
     Indication: MIGRAINE
     Dosage: AS NEEDED
     Route: 048
     Dates: start: 20060101
  9. FISH OIL [Concomitant]
     Indication: BLOOD CHOLESTEROL INCREASED
     Route: 048
     Dates: start: 20060101
  10. NEURONTIN [Concomitant]
     Route: 048
     Dates: start: 20060101
  11. CYMBALTA [Concomitant]
     Indication: DEPRESSION
     Route: 048
     Dates: start: 20010101
  12. AMBIEN CR [Concomitant]
     Indication: SLEEP DISORDER
     Dosage: AS NEEDED
     Route: 048
     Dates: start: 20060101

REACTIONS (6)
  - SLEEP DISORDER [None]
  - DRUG DOSE OMISSION [None]
  - DEVICE FAILURE [None]
  - HYPERTENSION [None]
  - BLOOD CHOLESTEROL INCREASED [None]
  - OVARIAN MASS [None]
